FAERS Safety Report 7293475-4 (Version None)
Quarter: 2011Q1

REPORT INFORMATION
  Report Type: 
  Country: None (occurrence: None)
  Receive Date: 20110215
  Receipt Date: 20110208
  Transmission Date: 20110831
  Serious: Yes (Other)
  Sender: FDA-Public Use
  Company Number: BR-BRISTOL-MYERS SQUIBB COMPANY-15543689

PATIENT
  Sex: Female

DRUGS (1)
  1. APROZIDE [Suspect]
     Dosage: 1DF=300MG TABS

REACTIONS (1)
  - FEMUR FRACTURE [None]
